FAERS Safety Report 5551498-7 (Version None)
Quarter: 2007Q4

REPORT INFORMATION
  Report Type: 
  Country: None (occurrence: None)
  Receive Date: 20071212
  Receipt Date: 20071204
  Transmission Date: 20080405
  Serious: Yes (Death)
  Sender: FDA-Public Use
  Company Number: JP-AVENTIS-200712934JP

PATIENT
  Age: 74 Year
  Sex: Female
  Weight: 58 kg

DRUGS (12)
  1. LASIX [Suspect]
     Indication: AORTIC DISSECTION
     Route: 048
     Dates: start: 20061019, end: 20061107
  2. ALDACTONE [Suspect]
     Indication: AORTIC DISSECTION
     Route: 048
     Dates: start: 20061019, end: 20061107
  3. GAMOFA [Suspect]
     Indication: AORTIC DISSECTION
     Dosage: DOSE: 1 AMPULE; ROUTE: GASTROSTOMY TUBE
     Route: 050
     Dates: start: 20061012, end: 20061107
  4. BUFFERIN [Suspect]
     Indication: AORTIC DISSECTION
     Route: 048
     Dates: start: 20061019, end: 20061111
  5. MYSLEE [Suspect]
     Indication: AORTIC DISSECTION
     Route: 048
     Dates: start: 20061019, end: 20061109
  6. LOPRESOR                           /00376902/ [Concomitant]
     Indication: AORTIC DISSECTION
     Route: 048
     Dates: start: 20061019, end: 20061109
  7. CIBENOL [Concomitant]
     Indication: AORTIC DISSECTION
     Route: 048
     Dates: start: 20061019, end: 20061111
  8. LANIRAPID [Concomitant]
     Indication: AORTIC DISSECTION
     Route: 048
     Dates: start: 20061019, end: 20061111
  9. BIOFERMIN [Concomitant]
     Indication: AORTIC DISSECTION
     Dosage: DOSE: 1 TABLET
     Route: 048
     Dates: start: 20061019, end: 20061109
  10. EURODIN                            /00425901/ [Concomitant]
     Dates: end: 20061106
  11. CONSTAN                            /00595201/ [Concomitant]
     Dates: end: 20061106
  12. SEROQUEL                           /01270902/ [Concomitant]
     Dates: end: 20061111

REACTIONS (16)
  - ALANINE AMINOTRANSFERASE INCREASED [None]
  - ASPARTATE AMINOTRANSFERASE INCREASED [None]
  - BLOOD ALKALINE PHOSPHATASE INCREASED [None]
  - BLOOD BILIRUBIN INCREASED [None]
  - BLOOD CREATINE PHOSPHOKINASE INCREASED [None]
  - BLOOD LACTATE DEHYDROGENASE INCREASED [None]
  - BLOOD UREA INCREASED [None]
  - DELIRIUM [None]
  - DISSEMINATED INTRAVASCULAR COAGULATION [None]
  - ERYTHEMA MULTIFORME [None]
  - GAMMA-GLUTAMYLTRANSFERASE INCREASED [None]
  - INFECTION [None]
  - MULTI-ORGAN FAILURE [None]
  - RESTLESSNESS [None]
  - SEPTIC SHOCK [None]
  - TOXIC EPIDERMAL NECROLYSIS [None]
